FAERS Safety Report 11053237 (Version 1)
Quarter: 2015Q2

REPORT INFORMATION
  Report Type: Report from Study
  Country: BR (occurrence: BR)
  Receive Date: 20150421
  Receipt Date: 20150421
  Transmission Date: 20150821
  Serious: Yes (Disabling)
  Sender: FDA-Public Use
  Company Number: BR-ABBVIE-15K-020-1377948-00

PATIENT
  Age: 38 Year
  Sex: Male
  Weight: 91 kg

DRUGS (4)
  1. HUMIRA [Suspect]
     Active Substance: ADALIMUMAB
     Indication: PSORIASIS
     Dosage: LOADING DOSE, WEEK 0
     Route: 058
     Dates: start: 20140715, end: 20140715
  2. FLUOXETINE [Concomitant]
     Active Substance: FLUOXETINE\FLUOXETINE HYDROCHLORIDE
     Indication: MENTAL DISORDER
     Route: 048
     Dates: start: 2013
  3. OMEPRAZOLE. [Concomitant]
     Active Substance: OMEPRAZOLE
     Indication: GASTRIC DISORDER
     Route: 048
     Dates: start: 2013
  4. HUMIRA [Suspect]
     Active Substance: ADALIMUMAB
     Route: 058

REACTIONS (10)
  - Visual acuity reduced [Not Recovered/Not Resolved]
  - Blister [Not Recovered/Not Resolved]
  - Headache [Recovered/Resolved]
  - Blister [Recovered/Resolved]
  - Ocular hyperaemia [Not Recovered/Not Resolved]
  - Psoriasis [Not Recovered/Not Resolved]
  - Headache [Not Recovered/Not Resolved]
  - Back pain [Not Recovered/Not Resolved]
  - Back pain [Recovered/Resolved]
  - Arthralgia [Not Recovered/Not Resolved]

NARRATIVE: CASE EVENT DATE: 20150320
